FAERS Safety Report 9885703 (Version 1)
Quarter: 2013Q2

REPORT INFORMATION
  Report Type: Spontaneous
  Country: US (occurrence: None)
  Receive Date: 20121023
  Receipt Date: 20121023
  Transmission Date: 20140414
  Serious: Yes (Other)
  Sender: FDA-Public Use
  Company Number: 2012SP010777

PATIENT
  Age: 70 Year
  Sex: Male

DRUGS (1)
  1. BCG VACCINE USP [Suspect]

REACTIONS (1)
  - Expired drug administered [None]
